FAERS Safety Report 9425914 (Version 1)
Quarter: 2013Q3

REPORT INFORMATION
  Report Type: Spontaneous
  Country: US (occurrence: US)
  Receive Date: 20130729
  Receipt Date: 20130729
  Transmission Date: 20140515
  Serious: No
  Sender: FDA-Public Use
  Company Number: US-009507513-1307USA010283

PATIENT
  Age: 34 Year
  Sex: Female

DRUGS (1)
  1. SAPHRIS [Suspect]
     Dosage: UNK
     Dates: start: 2010

REACTIONS (5)
  - Weight increased [Unknown]
  - Blood cholesterol increased [Unknown]
  - Stress [Unknown]
  - Anxiety [Unknown]
  - Feeling abnormal [Unknown]
